FAERS Safety Report 15602263 (Version 4)
Quarter: 2019Q3

REPORT INFORMATION
  Report Type: Report from Study
  Country: IN (occurrence: IN)
  Receive Date: 20181109
  Receipt Date: 20190905
  Transmission Date: 20191004
  Serious: Yes (Death, Life-Threatening, Hospitalization)
  Sender: FDA-Public Use
  Company Number: IN-TEVA-2018-IN-973500

PATIENT
  Age: 56 Year
  Sex: Female
  Weight: 45 kg

DRUGS (4)
  1. IRINOTECAN [Suspect]
     Active Substance: IRINOTECAN
     Indication: ADENOCARCINOMA PANCREAS
     Dosage: 27-SEP-2018 AND 12-OCT-2018
     Route: 042
     Dates: start: 20180927, end: 20181012
  2. LEUCOVORIN. [Suspect]
     Active Substance: LEUCOVORIN
     Indication: ADENOCARCINOMA PANCREAS
     Dosage: 27-SEP-2018, 12-OCT-2018, AND 01-NOV-2018
     Route: 042
     Dates: start: 20180927, end: 20181101
  3. ONIVYDE [Suspect]
     Active Substance: IRINOTECAN HYDROCHLORIDE
     Indication: ADENOCARCINOMA PANCREAS
     Route: 042
     Dates: start: 20181101, end: 20181101
  4. FLUOROURACIL. [Suspect]
     Active Substance: FLUOROURACIL
     Indication: ADENOCARCINOMA PANCREAS
     Dosage: 27-SEP-2018- 29-SEP-2018, 12-OCT-2018-14-OCT-2018, 01-NOV-2018-03-NOV-2018
     Route: 042
     Dates: start: 20180927, end: 20181103

REACTIONS (5)
  - Urine output decreased [Fatal]
  - Purpura [Not Recovered/Not Resolved]
  - Vaginal haemorrhage [Recovered/Resolved]
  - Multiple organ dysfunction syndrome [Fatal]
  - Hypoxia [Fatal]

NARRATIVE: CASE EVENT DATE: 20181106
